FAERS Safety Report 16954458 (Version 1)
Quarter: 2019Q4

REPORT INFORMATION
  Report Type: Report from Study
  Country: US (occurrence: US)
  Receive Date: 20191023
  Receipt Date: 20191023
  Transmission Date: 20200122
  Serious: Yes (Hospitalization)
  Sender: FDA-Public Use
  Company Number: US-BIOGEN-2019BI00797709

PATIENT
  Age: 2 Year
  Sex: Male

DRUGS (3)
  1. SPINRAZA [Suspect]
     Active Substance: NUSINERSEN
     Dosage: MAINTENANCE DOSE
     Route: 037
  2. SPINRAZA [Suspect]
     Active Substance: NUSINERSEN
     Indication: SPINAL MUSCULAR ATROPHY
     Dosage: FOR THE FIRST THREE LOADING DOSES
     Route: 037
     Dates: start: 20171227
  3. SPINRAZA [Suspect]
     Active Substance: NUSINERSEN
     Dosage: ONCE, AS 4TH LOADING DOSE
     Route: 037

REACTIONS (3)
  - Adenovirus infection [Recovered/Resolved]
  - Rhinovirus infection [Recovered/Resolved]
  - Pneumothorax [Recovered/Resolved]

NARRATIVE: CASE EVENT DATE: 20190923
